FAERS Safety Report 5728186-7 (Version None)
Quarter: 2008Q2

REPORT INFORMATION
  Report Type: 
  Country: None (occurrence: None)
  Receive Date: 20080501
  Receipt Date: 20080423
  Transmission Date: 20081010
  Serious: Yes (Other)
  Sender: FDA-Public Use
  Company Number: 2008010534

PATIENT
  Age: 29 Year
  Sex: Male
  Weight: 90.7 kg

DRUGS (1)
  1. ZYRTEC [Suspect]
     Indication: HYPERSENSITIVITY
     Dosage: 1 TABLET DAILY (10 MG,1 IN 1 D), ORAL
     Route: 048
     Dates: start: 20080407, end: 20080423

REACTIONS (1)
  - ERECTILE DYSFUNCTION [None]
